FAERS Safety Report 13355982 (Version 1)
Quarter: 2017Q1

REPORT INFORMATION
  Report Type: Spontaneous
  Country: US (occurrence: US)
  Receive Date: 20170321
  Receipt Date: 20170321
  Transmission Date: 20170429
  Serious: No
  Sender: FDA-Public Use
  Company Number: US-BAYER-2017-053270

PATIENT
  Age: 68 Year
  Sex: Female
  Weight: 104 kg

DRUGS (5)
  1. HYDROCHLOROTHIAZIDE. [Concomitant]
     Active Substance: HYDROCHLOROTHIAZIDE
  2. ALEVE PM [Suspect]
     Active Substance: DIPHENHYDRAMINE HYDROCHLORIDE\NAPROXEN SODIUM
     Indication: INSOMNIA
     Dosage: 1 DF, UNK
     Route: 048
     Dates: end: 20170319
  3. MELOXICAM. [Concomitant]
     Active Substance: MELOXICAM
  4. LOSARTAN. [Concomitant]
     Active Substance: LOSARTAN
  5. EQUATE ASPIRIN [Concomitant]
     Active Substance: ASPIRIN

REACTIONS (8)
  - Erythema [Not Recovered/Not Resolved]
  - Product use issue [Unknown]
  - Burning sensation [Not Recovered/Not Resolved]
  - Headache [Not Recovered/Not Resolved]
  - Swelling face [Not Recovered/Not Resolved]
  - Feeling abnormal [Not Recovered/Not Resolved]
  - Feeling hot [Not Recovered/Not Resolved]
  - Hypertension [Not Recovered/Not Resolved]

NARRATIVE: CASE EVENT DATE: 20170319
